FAERS Safety Report 4584234-1 (Version None)
Quarter: 2005Q1

REPORT INFORMATION
  Report Type: 
  Country: None (occurrence: None)
  Receive Date: 20050125
  Receipt Date: 20041027
  Transmission Date: 20050727
  Serious: No
  Sender: FDA-Public Use
  Company Number: USA041082447

PATIENT
  Age: 65 Year
  Sex: Female
  Weight: 77 kg

DRUGS (3)
  1. FORTEO [Suspect]
     Indication: OSTEOPOROSIS
     Dosage: 20 UG/1 DAY
     Dates: start: 20040501
  2. ENBREL [Concomitant]
  3. DILAUDID [Concomitant]

REACTIONS (1)
  - BONE PAIN [None]
